FAERS Safety Report 4960986-3 (Version None)
Quarter: 2006Q2

REPORT INFORMATION
  Report Type: 
  Country: None (occurrence: None)
  Receive Date: 20060403
  Receipt Date: 20060302
  Transmission Date: 20061013
  Serious: Yes (Hospitalization)
  Sender: FDA-Public Use
  Company Number: JRFUSA2000008116

PATIENT
  Sex: Female

DRUGS (3)
  1. PROPULSID [Suspect]
     Route: 048
     Dates: start: 19960101, end: 19990101
  2. PROPULSID [Suspect]
     Route: 048
     Dates: start: 19960101, end: 19990101
  3. INSULIN [Concomitant]
     Route: 058

REACTIONS (6)
  - ARRHYTHMIA [None]
  - CHEST PAIN [None]
  - ECTOPIC PREGNANCY [None]
  - ELECTROCARDIOGRAM ABNORMAL [None]
  - HYPERTENSION [None]
  - RENAL FAILURE [None]
